FAERS Safety Report 5301869-9 (Version None)
Quarter: 2007Q2

REPORT INFORMATION
  Report Type: 
  Country: None (occurrence: None)
  Receive Date: 20070416
  Receipt Date: 20070416
  Transmission Date: 20071010
  Serious: Yes (Hospitalization)
  Sender: FDA-Public Use
  Company Number: None

PATIENT
  Age: 70 Year
  Sex: Male
  Weight: 65.3 kg

DRUGS (2)
  1. PHENAZOPYRIDINE HCL TAB [Suspect]
     Indication: DYSURIA
     Dosage: 200MG EVERY 8 HOURS PO
     Route: 048
  2. VICODIN [Suspect]
     Indication: PAIN
     Dosage: AS NEEDED PO
     Route: 048

REACTIONS (1)
  - DYSPNOEA [None]
